FAERS Safety Report 14761575 (Version 1)
Quarter: 2018Q2

REPORT INFORMATION
  Report Type: Spontaneous
  Country: GB (occurrence: GB)
  Receive Date: 20180416
  Receipt Date: 20180416
  Transmission Date: 20180711
  Serious: Yes (Other)
  Sender: FDA-Public Use
  Company Number: GB-TEVA-2018-GB-881151

PATIENT
  Age: 18 Month
  Sex: Male

DRUGS (5)
  1. IBUPROFEN. [Suspect]
     Active Substance: IBUPROFEN
     Indication: VARICELLA
     Route: 048
     Dates: start: 20171115
  2. DIPROBASE [Concomitant]
     Active Substance: CHLOROCRESOL
     Route: 065
  3. PIRITON [Concomitant]
     Active Substance: CHLORPHENIRAMINE MALEATE
     Route: 065
  4. PARACETAMOL [Concomitant]
     Active Substance: ACETAMINOPHEN
     Route: 065
  5. HYDROCORTISONE. [Concomitant]
     Active Substance: HYDROCORTISONE
     Route: 065

REACTIONS (4)
  - Condition aggravated [Unknown]
  - Skin infection [Not Recovered/Not Resolved]
  - Contraindicated drug prescribed [Unknown]
  - Dermatitis [Unknown]
